FAERS Safety Report 7072257-2 (Version None)
Quarter: 2010Q4

REPORT INFORMATION
  Report Type: 
  Country: None (occurrence: None)
  Receive Date: 20101029
  Receipt Date: 20091226
  Transmission Date: 20110411
  Serious: No
  Sender: FDA-Public Use
  Company Number: A0837091A

PATIENT
  Sex: Female

DRUGS (1)
  1. ADVAIR DISKUS 100/50 [Suspect]
     Indication: PRODUCT USED FOR UNKNOWN INDICATION
     Dosage: 250U TWICE PER DAY
     Route: 065

REACTIONS (2)
  - CANDIDIASIS [None]
  - FEAR [None]
